FAERS Safety Report 13294224 (Version 1)
Quarter: 2017Q1

REPORT INFORMATION
  Report Type: Spontaneous
  Country: NL (occurrence: NL)
  Receive Date: 20170303
  Receipt Date: 20170303
  Transmission Date: 20170428
  Serious: Yes (Hospitalization)
  Sender: FDA-Public Use
  Company Number: NL-SA-2017SA034173

PATIENT
  Age: 32 Year
  Sex: Female
  Weight: 67 kg

DRUGS (2)
  1. AUBAGIO [Suspect]
     Active Substance: TERIFLUNOMIDE
     Indication: RELAPSING-REMITTING MULTIPLE SCLEROSIS
     Route: 048
     Dates: start: 20150908
  2. CODEINE [Concomitant]
     Active Substance: CODEINE
     Route: 048

REACTIONS (13)
  - Fatigue [Unknown]
  - Cardiomyopathy [Recovering/Resolving]
  - Sensation of foreign body [Recovered/Resolved]
  - Cardiac failure [Recovering/Resolving]
  - Productive cough [Unknown]
  - Cough [Unknown]
  - Heart rate increased [Unknown]
  - Central venous pressure increased [Unknown]
  - Blood pressure increased [Unknown]
  - Dyspnoea [Recovering/Resolving]
  - Haemoptysis [Unknown]
  - Orthopnoea [Unknown]
  - Painful respiration [Unknown]
